FAERS Safety Report 13770009 (Version 2)
Quarter: 2017Q3

REPORT INFORMATION
  Report Type: Report from Study
  Country: BR (occurrence: BR)
  Receive Date: 20170719
  Receipt Date: 20170804
  Transmission Date: 20171127
  Serious: Yes (Other)
  Sender: FDA-Public Use
  Company Number: PHHY2017BR106101

PATIENT
  Age: 68 Year
  Sex: Male
  Weight: 100 kg

DRUGS (2)
  1. DIOVAN [Suspect]
     Active Substance: VALSARTAN
     Indication: HYPERTENSION
     Dosage: 320 MG, QD
     Route: 048
     Dates: start: 20131126
  2. GLIFAGE [Concomitant]
     Active Substance: METFORMIN HYDROCHLORIDE
     Indication: DIABETES MELLITUS
     Dosage: QD
     Route: 048

REACTIONS (9)
  - Faeces discoloured [Unknown]
  - Anxiety [Unknown]
  - Hepatomegaly [Unknown]
  - Nephrolithiasis [Unknown]
  - Abdominal discomfort [Unknown]
  - Hepatic steatosis [Unknown]
  - Liver disorder [Recovering/Resolving]
  - Intestinal haemorrhage [Unknown]
  - Dyspepsia [Unknown]

NARRATIVE: CASE EVENT DATE: 20170620
